FAERS Safety Report 21738119 (Version 1)
Quarter: 2022Q4

REPORT INFORMATION
  Report Type: Spontaneous
  Country: US (occurrence: US)
  Receive Date: 20221216
  Receipt Date: 20221216
  Transmission Date: 20230112
  Serious: No
  Sender: FDA-Public Use
  Company Number: US-ENDO PHARMACEUTICALS INC-2022-001932

PATIENT
  Age: 48 Year
  Sex: Male

DRUGS (1)
  1. XIAFLEX [Suspect]
     Active Substance: COLLAGENASE CLOSTRIDIUM HISTOLYTICUM
     Indication: Peyronie^s disease
     Dosage: UNK UNKNOWN, UNKNOWN (CYCLE ONE, INJECTION ONE)
     Route: 065
     Dates: start: 20220308

REACTIONS (4)
  - Dysuria [Unknown]
  - Penile swelling [Unknown]
  - Injection site haematoma [Unknown]
  - Genital discolouration [Unknown]

NARRATIVE: CASE EVENT DATE: 20220308
